FAERS Safety Report 8935594 (Version 2)
Quarter: 2014Q1

REPORT INFORMATION
  Report Type: Spontaneous
  Country: US (occurrence: US)
  Receive Date: 20121130
  Receipt Date: 20140128
  Transmission Date: 20141002
  Serious: Yes (Other)
  Sender: FDA-Public Use
  Company Number: US-BAYER-2012-125355

PATIENT
  Age: 47 Year
  Sex: Female

DRUGS (14)
  1. YASMIN [Suspect]
  2. YAZ [Suspect]
  3. OCELLA [Suspect]
  4. FLUOXETINE [Concomitant]
     Dosage: 40 MG, UNK
     Dates: start: 20120228, end: 20120330
  5. MELOXICAM [Concomitant]
     Dosage: 15 MG, UNK
     Dates: start: 20120228
  6. TAMIFLU [Concomitant]
     Dosage: 75 MG, UNK
     Dates: start: 20120304
  7. PROMETHAZINE [Concomitant]
     Dosage: 25 MG, UNK
     Dates: start: 20120304
  8. LOSARTAN POTASSIUM [Concomitant]
     Dosage: 50 MG, UNK
     Dates: start: 20120305, end: 20120326
  9. MECLIZINE [Concomitant]
     Dosage: 25 MG, UNK
     Dates: start: 20120305
  10. ZOLPIDEM [Concomitant]
     Dosage: 10 MG, UNK
     Dates: start: 20120314, end: 20120516
  11. PHENTERMINE [Concomitant]
     Dosage: UNK
     Dates: start: 20120326, end: 20120403
  12. ULTRACET [Concomitant]
     Dosage: UNK
     Dates: start: 20120420
  13. CIPROFLOXACIN [Concomitant]
     Dosage: 500 MG, UNK
     Dates: start: 20120510
  14. DEXILANT [Concomitant]
     Dosage: 60 MG, UNK
     Dates: start: 20120514

REACTIONS (6)
  - Cholecystectomy [None]
  - Cholecystitis chronic [None]
  - Injury [None]
  - Pain [None]
  - Emotional distress [None]
  - Pain [None]
